FAERS Safety Report 7767182-5 (Version None)
Quarter: 2011Q3

REPORT INFORMATION
  Report Type: 
  Country: None (occurrence: None)
  Receive Date: 20110922
  Receipt Date: 20100824
  Transmission Date: 20111222
  Serious: No
  Sender: FDA-Public Use
  Company Number: US-ASTRAZENECA-2010SE39868

PATIENT
  Age: 41 Year
  Sex: Male
  Weight: 113.4 kg

DRUGS (3)
  1. LITHIUM CARBONATE [Concomitant]
     Route: 048
  2. KLONOPIN [Concomitant]
     Route: 048
  3. SEROQUEL XR [Suspect]
     Route: 048
     Dates: start: 20090801, end: 20100810

REACTIONS (2)
  - WRONG TECHNIQUE IN DRUG USAGE PROCESS [None]
  - FEELING ABNORMAL [None]
